FAERS Safety Report 25304474 (Version 1)
Quarter: 2025Q2

REPORT INFORMATION
  Report Type: Report from Study
  Country: US (occurrence: US)
  Receive Date: 20250513
  Receipt Date: 20250513
  Transmission Date: 20250717
  Serious: Yes (Hospitalization, Other)
  Sender: BAYER HEALTHCARE PHARMACEUTICALS INC.
  Company Number: US-BAYER-2025A062577

PATIENT
  Age: 56 Year
  Sex: Female

DRUGS (2)
  1. ADEMPAS [Suspect]
     Active Substance: RIOCIGUAT
     Indication: Pulmonary arterial hypertension
  2. ADEMPAS [Suspect]
     Active Substance: RIOCIGUAT
     Indication: Pulmonary arterial hypertension
     Dosage: 2.5 MG, TID
     Route: 048
     Dates: start: 202312

REACTIONS (9)
  - Anaemia [None]
  - Fluid retention [None]
  - Syncope [None]
  - Gastrooesophageal reflux disease [Not Recovered/Not Resolved]
  - Chest pain [None]
  - Fatigue [None]
  - Peripheral swelling [None]
  - Joint swelling [None]
  - Weight fluctuation [None]

NARRATIVE: CASE EVENT DATE: 20250101
